FAERS Safety Report 14950480 (Version 1)
Quarter: 2018Q2

REPORT INFORMATION
  Report Type: Spontaneous
  Country: US (occurrence: US)
  Receive Date: 20180530
  Receipt Date: 20180530
  Transmission Date: 20180711
  Serious: No
  Sender: FDA-Public Use
  Company Number: US-ASTRAZENECA-2018SE59103

PATIENT
  Age: 81 Year
  Sex: Female
  Weight: 90.7 kg

DRUGS (2)
  1. TUDORZA PRESSAIR [Suspect]
     Active Substance: ACLIDINIUM BROMIDE
     Indication: CHRONIC OBSTRUCTIVE PULMONARY DISEASE
     Dosage: 400MCG, 1 INHALATION IN THE MORNING AND 1 INHALATION IN THE EVENING
     Route: 055
  2. TUDORZA PRESSAIR [Suspect]
     Active Substance: ACLIDINIUM BROMIDE
     Indication: BRONCHIECTASIS
     Dosage: 400MCG, 1 INHALATION IN THE MORNING AND 1 INHALATION IN THE EVENING
     Route: 055

REACTIONS (7)
  - Gastroenteritis viral [Recovered/Resolved]
  - Drug ineffective [Unknown]
  - Intentional device misuse [Unknown]
  - Respiratory tract infection [Unknown]
  - Device malfunction [Unknown]
  - Lung disorder [Unknown]
  - Aphonia [Unknown]

NARRATIVE: CASE EVENT DATE: 201804
